FAERS Safety Report 19027430 (Version 1)
Quarter: 2021Q1

REPORT INFORMATION
  Report Type: Report from Study
  Country: BR (occurrence: BR)
  Receive Date: 20210319
  Receipt Date: 20210319
  Transmission Date: 20210420
  Serious: Yes (Other)
  Sender: FDA-Public Use
  Company Number: BR-ASTRAZENECA-2021A141719

PATIENT
  Age: 50 Year
  Sex: Male

DRUGS (9)
  1. DOCETAXEL. [Concomitant]
     Active Substance: DOCETAXEL
  2. VINORELBINE [Concomitant]
     Active Substance: VINORELBINE TARTRATE
  3. OSIMERTINIB. [Suspect]
     Active Substance: OSIMERTINIB
     Indication: LUNG ADENOCARCINOMA
     Route: 048
  4. TRAMETINIB [Concomitant]
     Active Substance: TRAMETINIB
  5. OSIMERTINIB. [Suspect]
     Active Substance: OSIMERTINIB
     Indication: LUNG ADENOCARCINOMA
     Route: 048
     Dates: start: 201801
  6. CARBOPLATIN. [Concomitant]
     Active Substance: CARBOPLATIN
  7. DABRAFENIB [Concomitant]
     Active Substance: DABRAFENIB
  8. PEMETREXED. [Concomitant]
     Active Substance: PEMETREXED
  9. PEMBROLIZUMAB. [Concomitant]
     Active Substance: PEMBROLIZUMAB

REACTIONS (3)
  - Drug resistance [Unknown]
  - Malignant neoplasm progression [Unknown]
  - Acquired gene mutation [Unknown]

NARRATIVE: CASE EVENT DATE: 201807
